FAERS Safety Report 13895044 (Version 1)
Quarter: 2017Q3

REPORT INFORMATION
  Report Type: Spontaneous
  Country: US (occurrence: US)
  Receive Date: 20170817
  Receipt Date: 20170817
  Transmission Date: 20171127
  Serious: Yes (Other)
  Sender: FDA-Public Use
  Company Number: None

PATIENT
  Age: 45 Year
  Sex: Female
  Weight: 96.75 kg

DRUGS (3)
  1. QSYMIA [Suspect]
     Active Substance: PHENTERMINE HYDROCHLORIDE\TOPIRAMATE
     Indication: WEIGHT DECREASED
     Dosage: ?          QUANTITY:1 CAPSULE(S);?
     Route: 048
  2. ZOLOFT [Concomitant]
     Active Substance: SERTRALINE HYDROCHLORIDE
  3. BIOTIN [Concomitant]
     Active Substance: BIOTIN

REACTIONS (5)
  - Fall [None]
  - Impaired driving ability [None]
  - Blindness [None]
  - Gait inability [None]
  - Vision blurred [None]

NARRATIVE: CASE EVENT DATE: 20170728
